FAERS Safety Report 7638552-0 (Version None)
Quarter: 2011Q3

REPORT INFORMATION
  Report Type: 
  Country: None (occurrence: None)
  Receive Date: 20110727
  Receipt Date: 20110718
  Transmission Date: 20111222
  Serious: Yes (Hospitalization)
  Sender: FDA-Public Use
  Company Number: PHHO2011FR09721

PATIENT
  Sex: Male
  Weight: 79 kg

DRUGS (15)
  1. RAD 666 / RAD 001A [Suspect]
     Dosage: 2 MG, BID
     Route: 048
     Dates: start: 20110516, end: 20110614
  2. PREDNISONE [Concomitant]
     Dosage: 5 MG
     Route: 048
  3. BACTRIM DS [Concomitant]
  4. CALCIPARINE [Concomitant]
  5. TAMSULOSIN HCL [Concomitant]
  6. PROGRAF [Concomitant]
     Indication: RENAL TRANSPLANT
     Dosage: 2 MG, BID
     Route: 048
     Dates: start: 20110614
  7. CELLCEPT [Concomitant]
     Indication: RENAL TRANSPLANT
     Dosage: 500 MG, BID
     Route: 048
     Dates: start: 20110224
  8. PREDNISONE [Concomitant]
     Indication: RENAL TRANSPLANT
     Dosage: 10 MG, UNK
     Route: 048
     Dates: start: 20110304
  9. PREVISCAN [Concomitant]
  10. RAD 666 / RAD 001A [Suspect]
     Indication: RENAL TRANSPLANT
     Dosage: 2 MG, BID
     Route: 048
     Dates: start: 20110228, end: 20110411
  11. VALGANCICLOVIR [Concomitant]
  12. ALFUZOSIN HCL [Concomitant]
  13. ESOMEPRAZOLE MAGNESIUM [Concomitant]
  14. BISOPROLOL FUMARATE [Concomitant]
  15. OFLOXACIN [Concomitant]

REACTIONS (5)
  - HYDRONEPHROSIS [None]
  - HYPERKALAEMIA [None]
  - URETERIC ANASTOMOSIS COMPLICATION [None]
  - RENAL FAILURE ACUTE [None]
  - LYMPHOCELE [None]
